FAERS Safety Report 7966538-5 (Version None)
Quarter: 2011Q4

REPORT INFORMATION
  Report Type: 
  Country: None (occurrence: None)
  Receive Date: 20111208
  Receipt Date: 20111202
  Transmission Date: 20120403
  Serious: Yes (Hospitalization)
  Sender: FDA-Public Use
  Company Number: US-AMGEN-USASP2011041908

PATIENT
  Age: 66 Year
  Sex: Female
  Weight: 63.492 kg

DRUGS (7)
  1. FLAXSEED OIL [Concomitant]
     Dosage: UNK
  2. VITAMIN D [Concomitant]
     Dosage: 400 MG, UNK
  3. SAM-E [Concomitant]
     Dosage: 400 MG, UNK
  4. TUMS                               /00193601/ [Concomitant]
     Dosage: 500 MG, UNK
  5. ENBREL [Suspect]
     Indication: RHEUMATOID ARTHRITIS
     Dosage: 50 MG, QWK
     Route: 058
     Dates: start: 19990315, end: 20110620
  6. FISH OIL [Concomitant]
     Dosage: 1000 MG, UNK
  7. ACETYLSALICYLIC ACID SRT [Concomitant]
     Dosage: 81 MG, UNK

REACTIONS (4)
  - BREAST CANCER [None]
  - SYNOVITIS [None]
  - ARTHRALGIA [None]
  - BONE DENSITY DECREASED [None]
